FAERS Safety Report 6553525-7 (Version None)
Quarter: 2010Q1

REPORT INFORMATION
  Report Type: 
  Country: None (occurrence: None)
  Receive Date: 20100127
  Receipt Date: 20100118
  Transmission Date: 20100710
  Serious: Yes (Hospitalization, Disabling)
  Sender: FDA-Public Use
  Company Number: PL-ROCHE-680219

PATIENT
  Sex: Female

DRUGS (15)
  1. PEG-INTERFERON ALFA 2A (RO 25-8310) [Suspect]
     Route: 058
     Dates: start: 20090304, end: 20090603
  2. PEG-INTERFERON ALFA 2A (RO 25-8310) [Suspect]
     Route: 058
     Dates: start: 20090604, end: 20090703
  3. PEG-INTERFERON ALFA 2A (RO 25-8310) [Suspect]
     Route: 058
     Dates: start: 20090704, end: 20090818
  4. PEG-INTERFERON ALFA 2A (RO 25-8310) [Suspect]
     Route: 058
     Dates: start: 20090818, end: 20090824
  5. PEG-INTERFERON ALFA 2A (RO 25-8310) [Suspect]
     Route: 058
     Dates: start: 20090824, end: 20100107
  6. BLINDED DEBIO-025 (UNIL-025) [Suspect]
     Dosage: DOSE BLINDED.
     Route: 048
     Dates: start: 20090304, end: 20090310
  7. BLINDED DEBIO-025 (UNIL-025) [Suspect]
     Dosage: DOSE BLINDED.
     Route: 048
     Dates: start: 20090311, end: 20100106
  8. RIBAVIRIN [Suspect]
     Route: 048
     Dates: start: 20090304, end: 20090516
  9. RIBAVIRIN [Suspect]
     Route: 048
     Dates: start: 20090517, end: 20090519
  10. RIBAVIRIN [Suspect]
     Route: 048
     Dates: start: 20090520, end: 20090605
  11. RIBAVIRIN [Suspect]
     Route: 048
     Dates: start: 20090606, end: 20090613
  12. RIBAVIRIN [Suspect]
     Route: 048
     Dates: start: 20090614, end: 20090701
  13. RIBAVIRIN [Suspect]
     Route: 048
     Dates: start: 20090702, end: 20090702
  14. RIBAVIRIN [Suspect]
     Route: 048
     Dates: start: 20090703, end: 20091112
  15. RIBAVIRIN [Suspect]
     Route: 048
     Dates: start: 20091113, end: 20100106

REACTIONS (2)
  - MIGRAINE [None]
  - VOMITING [None]
